FAERS Safety Report 4989901-3 (Version None)
Quarter: 2006Q2

REPORT INFORMATION
  Report Type: 
  Country: None (occurrence: None)
  Receive Date: 20060503
  Receipt Date: 20060426
  Transmission Date: 20061013
  Serious: Yes (Life-Threatening, Other)
  Sender: FDA-Public Use
  Company Number: US-SP-2006-00939

PATIENT
  Age: 8 Year
  Sex: Female

DRUGS (2)
  1. TUBERCULIN PPD [Suspect]
     Indication: TUBERCULIN TEST
     Route: 023
     Dates: start: 20051025
  2. TUBERCULIN PPD [Suspect]
     Route: 023
     Dates: start: 20051025

REACTIONS (17)
  - ABDOMINAL PAIN [None]
  - ASTHENIA [None]
  - CHEST PAIN [None]
  - CONFUSIONAL STATE [None]
  - CROUP INFECTIOUS [None]
  - DIARRHOEA [None]
  - DIZZINESS [None]
  - DYSPNOEA [None]
  - DYSPNOEA EXERTIONAL [None]
  - FALL [None]
  - HYPOAESTHESIA [None]
  - LUNG HYPERINFLATION [None]
  - MEDICATION ERROR [None]
  - PAIN IN EXTREMITY [None]
  - PHOTOPHOBIA [None]
  - PYREXIA [None]
  - VOMITING [None]
